FAERS Safety Report 24150260 (Version 1)
Quarter: 2024Q3

REPORT INFORMATION
  Report Type: Spontaneous
  Country: US (occurrence: US)
  Receive Date: 20240730
  Receipt Date: 20240730
  Transmission Date: 20241017
  Serious: No
  Sender: CSL Plasma
  Company Number: US-CSLP-40513019636-V13838170-6

PATIENT
  Age: 38 Year
  Sex: Female

DRUGS (4)
  1. ANTICOAGULANT SODIUM CITRATE [Suspect]
     Active Substance: SODIUM CITRATE
     Indication: Anticoagulant therapy
     Route: 050
     Dates: start: 20240713, end: 20240713
  2. TRAZODONE [Concomitant]
     Active Substance: TRAZODONE HYDROCHLORIDE
     Indication: Product used for unknown indication
  3. WELLBUTRIN [Concomitant]
     Active Substance: BUPROPION HYDROCHLORIDE
     Indication: Anxiety
  4. NEXPLANON [Concomitant]
     Active Substance: ETONOGESTREL
     Indication: Contraception

REACTIONS (10)
  - Movement disorder [Recovered/Resolved]
  - Abdominal pain [Recovered/Resolved]
  - Pallor [Recovered/Resolved]
  - Feeling hot [Recovered/Resolved]
  - Hypoaesthesia [Recovered/Resolved]
  - Muscle spasms [Recovered/Resolved]
  - Anxiety [Recovered/Resolved]
  - Tachypnoea [Recovered/Resolved]
  - Restlessness [Recovered/Resolved]
  - Paraesthesia [Recovered/Resolved]

NARRATIVE: CASE EVENT DATE: 20240713
